FAERS Safety Report 8517533-9 (Version None)
Quarter: 2012Q3

REPORT INFORMATION
  Report Type: 
  Country: None (occurrence: None)
  Receive Date: 20120718
  Receipt Date: 20120704
  Transmission Date: 20120928
  Serious: Yes (Hospitalization, Other)
  Sender: FDA-Public Use
  Company Number: CA-ROCHE-1077500

PATIENT
  Sex: Female

DRUGS (6)
  1. PAROXETINE [Concomitant]
  2. DOCUSATE [Concomitant]
  3. SENNA-MINT WAF [Concomitant]
  4. LIPITOR [Concomitant]
  5. VEMURAFENIB [Suspect]
     Indication: METASTATIC MALIGNANT MELANOMA
     Route: 048
     Dates: start: 20120430, end: 20120101
  6. METOCLOPRAMIDE [Concomitant]

REACTIONS (2)
  - INTESTINAL PERFORATION [None]
  - METASTASES TO CENTRAL NERVOUS SYSTEM [None]
